FAERS Safety Report 17755466 (Version 1)
Quarter: 2020Q2

REPORT INFORMATION
  Report Type: Spontaneous
  Country: US (occurrence: US)
  Receive Date: 20200506
  Receipt Date: 20200506
  Transmission Date: 20200714
  Serious: Yes (Other)
  Sender: FDA-Public Use
  Company Number: None

PATIENT
  Age: 18 Year
  Sex: Female

DRUGS (1)
  1. HUMIRA [Suspect]
     Active Substance: ADALIMUMAB
     Indication: RHEUMATOID ARTHRITIS
     Route: 058
     Dates: start: 20191205

REACTIONS (5)
  - Arthralgia [None]
  - Joint warmth [None]
  - Musculoskeletal pain [None]
  - Pain [None]
  - Arthritis [None]

NARRATIVE: CASE EVENT DATE: 20200427
